FAERS Safety Report 8585817-4 (Version None)
Quarter: 2012Q3

REPORT INFORMATION
  Report Type: 
  Country: None (occurrence: None)
  Receive Date: 20120802
  Receipt Date: 20120802
  Transmission Date: 20120928
  Serious: Yes (Hospitalization)
  Sender: FDA-Public Use
  Company Number: None

PATIENT
  Age: 77 Year
  Sex: Female
  Weight: 70 kg

DRUGS (1)
  1. ALISKEREN AND LOSARTAN [Suspect]

REACTIONS (3)
  - HYPERKALAEMIA [None]
  - DRUG INTERACTION [None]
  - HYPOTENSION [None]
